FAERS Safety Report 10086030 (Version 1)
Quarter: 2014Q2

REPORT INFORMATION
  Report Type: Spontaneous
  Country: FR (occurrence: FR)
  Receive Date: 20140418
  Receipt Date: 20140418
  Transmission Date: 20141212
  Serious: Yes (Hospitalization)
  Sender: FDA-Public Use
  Company Number: PHHY2014FR047131

PATIENT
  Age: 67 Year
  Sex: Female

DRUGS (2)
  1. GLIVEC [Suspect]
     Indication: CHRONIC MYELOID LEUKAEMIA
     Dosage: UNK UKN, UNK
     Dates: start: 2006, end: 201105
  2. GLIVEC [Suspect]
     Dosage: UNK UKN, UNK
     Dates: start: 201110

REACTIONS (2)
  - Congestive cardiomyopathy [Unknown]
  - Cardiac failure [Unknown]
